FAERS Safety Report 4612596-5 (Version None)
Quarter: 2005Q1

REPORT INFORMATION
  Report Type: 
  Country: None (occurrence: None)
  Receive Date: 20050318
  Receipt Date: 20011116
  Transmission Date: 20050727
  Serious: Yes (Life-Threatening, Hospitalization, Disabling, Other)
  Sender: FDA-Public Use
  Company Number: 200123291GDDC

PATIENT
  Sex: Female
  Weight: 90 kg

DRUGS (7)
  1. CLEXANE [Suspect]
     Indication: PULMONARY EMBOLISM
     Route: 058
     Dates: start: 20010831, end: 20010904
  2. CLARITHROMYCIN [Concomitant]
     Indication: PNEUMONIA
     Route: 048
     Dates: start: 20010831, end: 20010908
  3. CO-AMOXICLAV [Concomitant]
     Indication: PNEUMONIA
     Route: 042
  4. ALBUTEROL [Concomitant]
     Indication: ASTHMA
     Route: 055
  5. PREDNISONE [Concomitant]
     Indication: ASTHMA
     Route: 048
     Dates: start: 20010831, end: 20010905
  6. AMOXICILLIN AND CLAVULANATE POTASSIUM [Concomitant]
     Route: 048
     Dates: start: 20010831, end: 20010908
  7. OMEPRAZOLE [Concomitant]
     Route: 048
     Dates: start: 20010901, end: 20010919

REACTIONS (5)
  - ABDOMINAL PAIN [None]
  - ABDOMINAL TENDERNESS [None]
  - HAEMATOMA [None]
  - INTESTINAL OBSTRUCTION [None]
  - INTRA-ABDOMINAL HAEMORRHAGE [None]
